FAERS Safety Report 8484763-4 (Version None)
Quarter: 2012Q3

REPORT INFORMATION
  Report Type: 
  Country: None (occurrence: None)
  Receive Date: 20120703
  Receipt Date: 20120627
  Transmission Date: 20120928
  Serious: Yes (Other)
  Sender: FDA-Public Use
  Company Number: US-SANOFI-AVENTIS-2012SA042250

PATIENT
  Sex: Male

DRUGS (3)
  1. PRAVASTATIN [Suspect]
     Route: 065
     Dates: start: 20120101
  2. MULTAQ [Suspect]
     Route: 048
     Dates: start: 20100101
  3. SIMVASTATIN [Suspect]
     Route: 065
     Dates: start: 20120601

REACTIONS (4)
  - STENT PLACEMENT [None]
  - STREPTOCOCCAL INFECTION [None]
  - MYALGIA [None]
  - MALAISE [None]
